FAERS Safety Report 16163072 (Version 3)
Quarter: 2020Q3

REPORT INFORMATION
  Report Type: Other
  Country: CA (occurrence: CA)
  Receive Date: 20190405
  Receipt Date: 20200925
  Transmission Date: 20201102
  Serious: Yes (Other)
  Sender: FDA-Public Use
  Company Number: CA-APOTEX-2019AP010624

PATIENT
  Age: 27 Year
  Sex: Female

DRUGS (53)
  1. APO?SILDENAFIL R [Suspect]
     Active Substance: SILDENAFIL
     Dosage: 20 MG, TID
     Route: 065
  2. APO?SILDENAFIL R [Suspect]
     Active Substance: SILDENAFIL
     Dosage: 80 MILLIGRAM, QD
     Route: 048
  3. APO?SILDENAFIL R [Suspect]
     Active Substance: SILDENAFIL
     Dosage: 60 DOSAGE FORM, QD
     Route: 065
  4. APO?SILDENAFIL R [Suspect]
     Active Substance: SILDENAFIL
     Dosage: 60 MILLIGRAM, QD
     Route: 065
  5. APO?SILDENAFIL R [Suspect]
     Active Substance: SILDENAFIL
     Dosage: 20 MILLIGRAM
     Route: 065
  6. NIFEDIPINE. [Suspect]
     Active Substance: NIFEDIPINE
     Dosage: 20 MG, UNK
     Route: 048
  7. APO?SILDENAFIL R [Suspect]
     Active Substance: SILDENAFIL
     Dosage: 20 MG, UNK
     Route: 048
  8. APO?SILDENAFIL R [Suspect]
     Active Substance: SILDENAFIL
     Dosage: 20 MILLIGRAM, BID
     Route: 048
  9. METHYLDOPA. [Suspect]
     Active Substance: METHYLDOPA
     Dosage: UNK
     Route: 065
  10. INSULIN [Suspect]
     Active Substance: INSULIN NOS
     Indication: TYPE 2 DIABETES MELLITUS
     Dosage: UNK
     Route: 048
  11. DEXPANTHENOL W/ERGOCALCIFEROL/NICOTINAMIDE/PY [Suspect]
     Active Substance: VITAMINS
     Indication: PROPHYLAXIS
     Dosage: UNK
     Route: 065
  12. DICLECTIN [Suspect]
     Active Substance: DOXYLAMINE SUCCINATE\PYRIDOXINE HYDROCHLORIDE
     Dosage: UNK
     Route: 065
  13. NIFEDIPINE. [Suspect]
     Active Substance: NIFEDIPINE
     Dosage: 60 MILLIGRAM, QD
     Route: 023
  14. APO?SILDENAFIL R [Suspect]
     Active Substance: SILDENAFIL
     Dosage: 20 MILLIGRAM, (ONCE EVERY EIGHT HOURS)
     Route: 065
  15. APO?SILDENAFIL R [Suspect]
     Active Substance: SILDENAFIL
     Dosage: UNK UNK, QID
     Route: 048
  16. SILDENAFIL CITRATE. [Suspect]
     Active Substance: SILDENAFIL CITRATE
     Indication: FOETAL GROWTH RESTRICTION
     Dosage: 20 MILLIGRAM, Q.12H
     Route: 065
  17. APO?SILDENAFIL R [Suspect]
     Active Substance: SILDENAFIL
     Dosage: 20 MG, Q.6H
     Route: 048
  18. APO?SILDENAFIL R [Suspect]
     Active Substance: SILDENAFIL
     Dosage: UNK UNK, Q.6H
     Route: 065
  19. APO?SILDENAFIL R [Suspect]
     Active Substance: SILDENAFIL
     Dosage: 20 MILLIGRAM, QD
     Route: 048
  20. APO?SILDENAFIL R [Suspect]
     Active Substance: SILDENAFIL
     Dosage: 80 UNK
     Route: 048
  21. DICLECTIN [Suspect]
     Active Substance: DOXYLAMINE SUCCINATE\PYRIDOXINE HYDROCHLORIDE
     Indication: PROPHYLAXIS
     Dosage: UNK
     Route: 048
  22. CHLORAPREP ONE?STEP [Suspect]
     Active Substance: CHLORHEXIDINE GLUCONATE\ISOPROPYL ALCOHOL
     Indication: GINGIVAL HYPERTROPHY
     Dosage: UNK
     Route: 065
  23. PERIOGARD [Suspect]
     Active Substance: CHLORHEXIDINE GLUCONATE
     Indication: GINGIVAL HYPERTROPHY
     Dosage: UNK
     Route: 065
  24. ASPIRIN [ACETYLSALICYLIC ACID] [Suspect]
     Active Substance: ASPIRIN
     Indication: PRODUCT USED FOR UNKNOWN INDICATION
     Dosage: UNK
     Route: 065
  25. APO?SILDENAFIL R [Suspect]
     Active Substance: SILDENAFIL
     Indication: FOETAL GROWTH RESTRICTION
     Dosage: 20 MG, BID
     Route: 065
  26. APO?SILDENAFIL R [Suspect]
     Active Substance: SILDENAFIL
     Dosage: 20 MILLIGRAM, (ONE EVERY EIGHT HOURS)
     Route: 048
  27. APO?SILDENAFIL R [Suspect]
     Active Substance: SILDENAFIL
     Dosage: 20 MILLIGRAM, TID
     Route: 048
  28. NIFEDIPINE. [Suspect]
     Active Substance: NIFEDIPINE
     Dosage: 120 MILLIGRAM, BID
     Route: 065
  29. ERGOCALCIFEROL. [Suspect]
     Active Substance: ERGOCALCIFEROL
     Indication: PROPHYLAXIS
     Dosage: UNK
     Route: 065
  30. APO?SILDENAFIL R [Suspect]
     Active Substance: SILDENAFIL
     Dosage: 20 MILLIGRAM, Q.6H
     Route: 065
  31. APO?SILDENAFIL R [Suspect]
     Active Substance: SILDENAFIL
     Dosage: 20 MILLIGRAM, QID
     Route: 048
  32. APO?SILDENAFIL R [Suspect]
     Active Substance: SILDENAFIL
     Dosage: UNK
     Route: 048
  33. NIFEDIPINE. [Suspect]
     Active Substance: NIFEDIPINE
     Indication: HYPERTENSION
     Dosage: 60 MG, BID
     Route: 065
  34. NIFEDIPINE. [Suspect]
     Active Substance: NIFEDIPINE
     Dosage: 20 MG, BID
     Route: 065
  35. NIFEDIPINE. [Suspect]
     Active Substance: NIFEDIPINE
     Dosage: 20 MILLIGRAM, TID
     Route: 065
  36. NIFEDIPINE. [Suspect]
     Active Substance: NIFEDIPINE
     Dosage: 20 MG, UNK
     Route: 065
  37. NIFEDIPINE. [Suspect]
     Active Substance: NIFEDIPINE
     Dosage: 20 MILLIGRAM
     Route: 065
  38. NIFEDIPINE. [Suspect]
     Active Substance: NIFEDIPINE
     Dosage: 60 MILLIGRAM
     Route: 065
  39. METHYLDOPA. [Suspect]
     Active Substance: METHYLDOPA
     Indication: HYPERTENSION
     Dosage: UNK
     Route: 048
  40. METFORMIN [Suspect]
     Active Substance: METFORMIN HYDROCHLORIDE
     Indication: TYPE 2 DIABETES MELLITUS
     Dosage: UNK
     Route: 065
  41. APO?SILDENAFIL R [Suspect]
     Active Substance: SILDENAFIL
     Dosage: 20 MILLIGRAM, SIX EVERY ONE HOUR
     Route: 048
  42. NIFEDIPINE. [Suspect]
     Active Substance: NIFEDIPINE
     Dosage: 20 MG, QD
     Route: 065
  43. NIFEDIPINE. [Suspect]
     Active Substance: NIFEDIPINE
     Dosage: UNK
     Route: 065
  44. NIFEDIPINE. [Suspect]
     Active Substance: NIFEDIPINE
     Dosage: 120 MILLIGRAM, QD
     Route: 065
  45. ACETYLSALICYLIC ACID [Suspect]
     Active Substance: ASPIRIN
     Indication: PROPHYLAXIS
     Dosage: UNK
     Route: 065
  46. CHLORHEXIDINE [Suspect]
     Active Substance: CHLORHEXIDINE
     Indication: GINGIVAL HYPERTROPHY
     Dosage: UNK
     Route: 065
  47. APO?SILDENAFIL R [Suspect]
     Active Substance: SILDENAFIL
     Dosage: UNK
     Route: 065
  48. APO?SILDENAFIL R [Suspect]
     Active Substance: SILDENAFIL
     Dosage: 40 MILLIGRAM, QD
     Route: 065
  49. APO?SILDENAFIL R [Suspect]
     Active Substance: SILDENAFIL
     Dosage: UNK UNK, Q.6H
     Route: 048
  50. NIFEDIPINE. [Suspect]
     Active Substance: NIFEDIPINE
     Dosage: 40 MILLIGRAM, QD
     Route: 065
  51. NIFEDIPINE. [Suspect]
     Active Substance: NIFEDIPINE
     Dosage: 20 MG, QD
     Route: 048
  52. NIFEDIPINE. [Suspect]
     Active Substance: NIFEDIPINE
     Indication: HYPERTENSION
     Dosage: 20 MG, TID
     Route: 023
  53. MULTIVITAMINS [VITAMINS NOS] [Suspect]
     Active Substance: VITAMINS
     Indication: PRODUCT USED FOR UNKNOWN INDICATION
     Dosage: UNK
     Route: 065

REACTIONS (3)
  - Premature delivery [Unknown]
  - Off label use [Unknown]
  - Maternal exposure during pregnancy [Unknown]
